FAERS Safety Report 17472432 (Version 1)
Quarter: 2020Q1

REPORT INFORMATION
  Report Type: Spontaneous
  Country: US (occurrence: US)
  Receive Date: 20200217
  Receipt Date: 20200217
  Transmission Date: 20200409
  Serious: No
  Sender: FDA-Public Use
  Company Number: None

PATIENT
  Age: 63 Year
  Sex: Male

DRUGS (6)
  1. CIALIS [Concomitant]
     Active Substance: TADALAFIL
  2. RAPAFLO [Concomitant]
     Active Substance: SILODOSIN
  3. PREDNISONE. [Concomitant]
     Active Substance: PREDNISONE
  4. BRAFTOVI [Suspect]
     Active Substance: ENCORAFENIB
     Indication: NEOPLASM MALIGNANT
     Route: 048
     Dates: start: 20190923
  5. MEKTOVI [Suspect]
     Active Substance: BINIMETINIB
     Indication: NEOPLASM MALIGNANT
     Route: 048
     Dates: start: 20190923
  6. LOVENOX [Concomitant]
     Active Substance: ENOXAPARIN SODIUM

REACTIONS (1)
  - Brain neoplasm [None]

NARRATIVE: CASE EVENT DATE: 20200215
